FAERS Safety Report 7077170-2 (Version None)
Quarter: 2010Q4

REPORT INFORMATION
  Report Type: 
  Country: None (occurrence: None)
  Receive Date: 20101101
  Receipt Date: 20101026
  Transmission Date: 20110411
  Serious: Yes (Other)
  Sender: FDA-Public Use
  Company Number: B0668710A

PATIENT
  Sex: Female
  Weight: 47 kg

DRUGS (1)
  1. LAMICTAL [Suspect]
     Dosage: 25MG PER DAY
     Route: 048
     Dates: start: 20100920, end: 20100929

REACTIONS (3)
  - DERMATITIS BULLOUS [None]
  - PRURITUS [None]
  - TOXIC SKIN ERUPTION [None]
